FAERS Safety Report 9794304 (Version 2)
Quarter: 2014Q2

REPORT INFORMATION
  Report Type: Spontaneous
  Country: US (occurrence: US)
  Receive Date: 20140102
  Receipt Date: 20140501
  Transmission Date: 20141212
  Serious: No
  Sender: FDA-Public Use
  Company Number: US-AMGEN-USASP2013087953

PATIENT
  Age: 42 Year
  Sex: Male
  Weight: 104.31 kg

DRUGS (4)
  1. ENBREL [Suspect]
     Indication: PSORIATIC ARTHROPATHY
     Dosage: 50 MG, QWK
     Route: 058
  2. ULTRAM                             /00599202/ [Concomitant]
     Dosage: 100 MG, UNK
  3. CLOBETAZOL [Concomitant]
     Dosage: 0.05 %, UNK
     Route: 065
  4. ADVIL                              /00044201/ [Concomitant]
     Dosage: 200 MG, UNK
     Route: 065

REACTIONS (1)
  - Herpes zoster [Recovered/Resolved]
